FAERS Safety Report 15981242 (Version 1)
Quarter: 2019Q1

REPORT INFORMATION
  Report Type: Spontaneous
  Country: GB (occurrence: GB)
  Receive Date: 20190219
  Receipt Date: 20190219
  Transmission Date: 20190418
  Serious: Yes (Other)
  Sender: FDA-Public Use
  Company Number: GB-FRESENIUS KABI-FK201901633

PATIENT
  Sex: Female

DRUGS (10)
  1. OMEPRAZOLE. [Suspect]
     Active Substance: OMEPRAZOLE
     Indication: PRODUCT USED FOR UNKNOWN INDICATION
     Route: 065
  2. CLOBAZAM. [Suspect]
     Active Substance: CLOBAZAM
     Indication: EPILEPSY
     Route: 065
  3. VALPROIC ACID/VALPROATE SODIUM [Suspect]
     Active Substance: VALPROIC ACID
     Indication: EPILEPSY
     Dosage: UNK (500 MG AND 200 MG TABLETS)
     Route: 065
  4. RANITIDINE. [Suspect]
     Active Substance: RANITIDINE
     Indication: PRODUCT USED FOR UNKNOWN INDICATION
     Route: 065
  5. LEVETIRACETAM. [Suspect]
     Active Substance: LEVETIRACETAM
     Indication: EPILEPSY
     Route: 065
  6. DICYCLOVERINE HYDROCHLORIDE [Suspect]
     Active Substance: DICYCLOMINE HYDROCHLORIDE
     Indication: PRODUCT USED FOR UNKNOWN INDICATION
     Route: 065
  7. MIDAZOLAM HYDROCHLORIDE. [Suspect]
     Active Substance: MIDAZOLAM HYDROCHLORIDE
     Indication: EPILEPSY
     Route: 065
  8. PARACETAMOL (MANUFACTURER UNKNOWN) [Suspect]
     Active Substance: ACETAMINOPHEN
     Indication: PRODUCT USED FOR UNKNOWN INDICATION
     Route: 065
  9. MELATONIN [Suspect]
     Active Substance: MELATONIN
     Indication: PRODUCT USED FOR UNKNOWN INDICATION
     Route: 065
  10. LACTULOSE (MANUFACTURER UNKNOWN) [Suspect]
     Active Substance: LACTULOSE
     Indication: PRODUCT USED FOR UNKNOWN INDICATION
     Route: 065

REACTIONS (1)
  - Seizure [Unknown]
